FAERS Safety Report 8609918 (Version 2)
Quarter: 2013Q2

REPORT INFORMATION
  Report Type: Spontaneous
  Country: US (occurrence: US)
  Receive Date: 20120612
  Receipt Date: 20130528
  Transmission Date: 20140414
  Serious: Yes (Hospitalization)
  Sender: FDA-Public Use
  Company Number: US-BAYER-2012-056796

PATIENT
  Age: 25 Year
  Sex: Female
  Weight: 97.96 kg

DRUGS (22)
  1. YASMIN [Suspect]
  2. YAZ [Suspect]
  3. OCELLA [Suspect]
  4. DIFLUCAN [Concomitant]
     Indication: VULVOVAGINAL MYCOTIC INFECTION
     Dosage: 150 MG 1 EVERY 3 DAYS
     Route: 048
     Dates: start: 20071105
  5. DIFLUCAN [Concomitant]
     Indication: VULVOVAGINAL MYCOTIC INFECTION
     Dosage: 100 MG, UNK
     Route: 048
     Dates: start: 20071212
  6. FLAGYL [Concomitant]
     Dosage: 500 MG, TID
     Route: 048
     Dates: start: 20071008
  7. FLAGYL [Concomitant]
     Dosage: UNK
     Dates: start: 20071212
  8. AZITHROMYCIN [Concomitant]
     Indication: PHARYNGITIS
     Dosage: 250 MG TABLETS - 6 PACK
     Route: 048
     Dates: start: 20080122
  9. CLARITIN D [Concomitant]
     Indication: RHINITIS
     Dosage: 10 MG,DAILY
     Route: 048
     Dates: start: 20080122
  10. TORADOL [Concomitant]
     Indication: BACK PAIN
     Dosage: 60 MG, UNK
     Route: 030
     Dates: start: 20080124
  11. TYLENOL [Concomitant]
     Dosage: UNK
     Dates: start: 20080124
  12. TYLENOL [Concomitant]
  13. ALEVE [Concomitant]
     Dosage: UNK
     Dates: start: 20080124
  14. IBUPROFEN [Concomitant]
     Dosage: UNK
     Route: 048
     Dates: start: 20080125
  15. LIDODERM [Concomitant]
     Dosage: UNK
     Route: 061
     Dates: start: 20080125
  16. AUGMENTIN [Concomitant]
  17. MUCINEX [Concomitant]
  18. WARFARIN [Concomitant]
     Indication: PULMONARY EMBOLISM
  19. WARFARIN [Concomitant]
     Indication: PULMONARY INFARCTION
  20. MILK OF MAGNESIA [Concomitant]
     Indication: CONSTIPATION
  21. ZOFRAN [Concomitant]
     Indication: NAUSEA
  22. NORCO [Concomitant]
     Indication: PAIN
     Dosage: 5/324 MG

REACTIONS (6)
  - Pulmonary embolism [None]
  - Pulmonary embolism [None]
  - Pulmonary infarction [None]
  - Injury [None]
  - Pain [None]
  - Pain [None]
